FAERS Safety Report 5376477-4 (Version None)
Quarter: 2007Q3

REPORT INFORMATION
  Report Type: 
  Country: None (occurrence: None)
  Receive Date: 20070702
  Receipt Date: 20070620
  Transmission Date: 20080115
  Serious: Yes (Other)
  Sender: FDA-Public Use
  Company Number: JP-PFIZER INC-2007053229

PATIENT
  Sex: Male

DRUGS (11)
  1. LIPITOR [Suspect]
     Dosage: DAILY DOSE:10MG
     Route: 048
  2. ATENOLOL [Suspect]
     Indication: CARDIAC FAILURE
     Dosage: DAILY DOSE:50MG
     Route: 048
  3. ASPIRIN [Suspect]
     Dosage: DAILY DOSE:100MG
     Route: 048
     Dates: start: 20070427, end: 20070610
  4. BEPRICOR [Suspect]
     Dosage: DAILY DOSE:100MG
     Route: 048
     Dates: start: 20070427, end: 20070610
  5. PLETAL [Suspect]
     Route: 048
  6. SIGMART [Suspect]
     Dosage: DAILY DOSE:15MG
     Route: 048
     Dates: start: 20070427, end: 20070610
  7. WARFARIN SODIUM [Suspect]
     Dosage: DAILY DOSE:.5MG
     Route: 048
     Dates: start: 20070427, end: 20070610
  8. ZANTAC [Suspect]
     Dosage: DAILY DOSE:150MG
     Route: 048
     Dates: start: 20070427, end: 20070610
  9. LENDORMIN [Suspect]
     Dosage: DAILY DOSE:.25MG-FREQ:FREQUENCY: PRN
     Route: 048
  10. FUROSEMIDE [Concomitant]
  11. AMBROXOL HYDROCHLORIDE [Concomitant]

REACTIONS (1)
  - NEUTROPHIL COUNT DECREASED [None]
